FAERS Safety Report 24020576 (Version 2)
Quarter: 2024Q3

REPORT INFORMATION
  Report Type: Spontaneous
  Country: US (occurrence: US)
  Receive Date: 20240627
  Receipt Date: 20240820
  Transmission Date: 20241017
  Serious: No
  Sender: BIOVITRUM
  Company Number: US-BIOVITRUM-2024-US-009157

PATIENT
  Age: 79 Year
  Sex: Male

DRUGS (1)
  1. VONJO [Suspect]
     Active Substance: PACRITINIB
     Indication: Myelofibrosis
     Dosage: TWICE DAILY
     Route: 048
     Dates: start: 202406

REACTIONS (5)
  - Fatigue [Unknown]
  - Pallor [Unknown]
  - Diarrhoea [Unknown]
  - Dyspepsia [Unknown]
  - Stomach mass [Recovered/Resolved]
